FAERS Safety Report 4876888-7 (Version None)
Quarter: 2006Q1

REPORT INFORMATION
  Report Type: 
  Country: None (occurrence: None)
  Receive Date: 20060109
  Receipt Date: 20060109
  Transmission Date: 20060701
  Serious: Yes (Other)
  Sender: FDA-Public Use
  Company Number: None

PATIENT
  Age: 86 Year
  Sex: Female
  Weight: 49.8957 kg

DRUGS (1)
  1. ZOSYN [Suspect]
     Indication: ABSCESS INTESTINAL
     Dosage: 3.375 GM Q 8 H IV
     Route: 042
     Dates: start: 20051026, end: 20051121

REACTIONS (1)
  - NEUTROPENIA [None]
